FAERS Safety Report 20550646 (Version 2)
Quarter: 2022Q1

REPORT INFORMATION
  Report Type: Report from Study
  Country: AR (occurrence: None)
  Receive Date: 20220304
  Receipt Date: 20220323
  Transmission Date: 20220423
  Serious: Yes (Other)
  Sender: FDA-Public Use
  Company Number: AR-Merck Healthcare KGaA-9302732

PATIENT
  Age: 13 Year
  Sex: Male

DRUGS (2)
  1. SAIZEN [Suspect]
     Active Substance: SOMATROPIN
     Indication: Short stature
     Dates: start: 2013
  2. OPTAMOX [AMOXICILLIN TRIHYDRATE] [Concomitant]
     Indication: Product used for unknown indication

REACTIONS (1)
  - Nasal turbinate hypertrophy [Recovering/Resolving]

NARRATIVE: CASE EVENT DATE: 20220223
